FAERS Safety Report 6361411-0 (Version None)
Quarter: 2009Q3

REPORT INFORMATION
  Report Type: 
  Country: None (occurrence: None)
  Receive Date: 20090918
  Receipt Date: 20090910
  Transmission Date: 20100115
  Serious: Yes (Other)
  Sender: FDA-Public Use
  Company Number: AU-PFIZER INC-2009245628

PATIENT
  Age: 36 Year

DRUGS (1)
  1. FLUCONAZOLE [Suspect]
     Indication: PROPHYLAXIS
     Dosage: 250 MG, 2X/DAY

REACTIONS (3)
  - CANDIDIASIS [None]
  - PERITONEAL FLUID ANALYSIS ABNORMAL [None]
  - SEPSIS [None]
